FAERS Safety Report 8699216 (Version 2)
Quarter: 2012Q4

REPORT INFORMATION
  Report Type: 
  Country: US (occurrence: US)
  Receive Date: 20120802
  Receipt Date: 20120926
  Transmission Date: 20130627
  Serious: Yes (Hospitalization, Other)
  Sender: FDA-Public Use
  Company Number: PHEH2012US013495

PATIENT
  Age: 37 Year
  Sex: Female
  Weight: 73.02 kg

DRUGS (7)
  1. GILENYA [Suspect]
     Indication: MULTIPLE SCLEROSIS
     Dosage: 0.5 mg, QD
     Route: 048
     Dates: start: 20120702, end: 20120703
  2. LYRICA [Concomitant]
     Dosage: 50 mg, TID
     Route: 048
  3. NUVIGIL [Concomitant]
     Dosage: 150 mg, QD
     Route: 048
  4. OXYCONTIN [Concomitant]
     Indication: PAIN
     Dosage: 20 mg, QD
     Route: 048
     Dates: start: 20100916
  5. TIZANIDINE [Concomitant]
     Indication: PAIN
     Dosage: 4-8 mg each night
     Route: 048
     Dates: start: 20110225
  6. TRAMADOL [Concomitant]
     Indication: PAIN
     Dosage: 1-2 tablets Q6H PRN
     Route: 048
     Dates: start: 20110225
  7. RELPAX [Concomitant]
     Indication: MIGRAINE
     Dosage: 1-2 tablets PRN
     Route: 048
     Dates: start: 20100916

REACTIONS (5)
  - Atrioventricular block second degree [Recovered/Resolved]
  - Bradycardia [Recovered/Resolved]
  - Dizziness [Unknown]
  - Asthenia [Unknown]
  - Arrhythmia [Unknown]
